FAERS Safety Report 13422028 (Version 2)
Quarter: 2017Q3

REPORT INFORMATION
  Report Type: Spontaneous
  Country: GB (occurrence: GB)
  Receive Date: 20170410
  Receipt Date: 20170710
  Transmission Date: 20171127
  Serious: Yes (Other)
  Sender: FDA-Public Use
  Company Number: GB-SUN PHARMACEUTICAL INDUSTRIES LTD-2017RR-137505

PATIENT
  Age: 13 Year
  Sex: Female

DRUGS (2)
  1. FERROUS SULFATE. [Suspect]
     Active Substance: FERROUS SULFATE
     Indication: IRON DEFICIENCY
     Dosage: MEDICINE DOSE
     Route: 048
     Dates: start: 2013
  2. METHYLCOBALAMIN. [Concomitant]
     Active Substance: METHYLCOBALAMIN
     Indication: PRODUCT USED FOR UNKNOWN INDICATION
     Dosage: UNK
     Route: 065

REACTIONS (10)
  - Dysstasia [Unknown]
  - Symptom masked [Unknown]
  - Alopecia [Unknown]
  - Headache [Unknown]
  - Abnormal loss of weight [Unknown]
  - Vision blurred [Unknown]
  - Contusion [Unknown]
  - Muscular weakness [Unknown]
  - Chest pain [Unknown]
  - Hair colour changes [Unknown]
